FAERS Safety Report 23580971 (Version 1)
Quarter: 2024Q1

REPORT INFORMATION
  Report Type: Spontaneous
  Country: US (occurrence: None)
  Receive Date: 20240229
  Receipt Date: 20240229
  Transmission Date: 20240409
  Serious: Yes (Death)
  Sender: FDA-Public Use
  Company Number: None

PATIENT
  Age: 76 Year
  Sex: Female

DRUGS (11)
  1. ERIVEDGE [Suspect]
     Active Substance: VISMODEGIB
     Indication: Basal cell carcinoma
     Dosage: OTHER FREQUENCY : 2 WKS ON/2 WKS OFF;?
     Route: 048
     Dates: start: 20231004
  2. GABAPENTIN [Concomitant]
     Active Substance: GABAPENTIN
  3. ELIQUIS [Concomitant]
     Active Substance: APIXABAN
  4. LEXAPRO [Concomitant]
     Active Substance: ESCITALOPRAM OXALATE
  5. LIPITOR [Concomitant]
     Active Substance: ATORVASTATIN CALCIUM
  6. SENSIPAR [Concomitant]
     Active Substance: CINACALCET HYDROCHLORIDE
  7. LEVOTHYROXINE [Concomitant]
     Active Substance: LEVOTHYROXINE\LEVOTHYROXINE SODIUM
  8. OLANZAPINE [Concomitant]
     Active Substance: OLANZAPINE
  9. PREDNISONE [Concomitant]
     Active Substance: PREDNISONE
  10. TOPROL XL [Concomitant]
     Active Substance: METOPROLOL SUCCINATE
  11. SIROLIMUS [Concomitant]
     Active Substance: SIROLIMUS

REACTIONS (1)
  - Death [None]
